FAERS Safety Report 21562233 (Version 1)
Quarter: 2022Q4

REPORT INFORMATION
  Report Type: Spontaneous
  Country: US (occurrence: None)
  Receive Date: 20221105
  Receipt Date: 20221105
  Transmission Date: 20230112
  Serious: Yes (Hospitalization)
  Sender: FDA-Public Use
  Company Number: None

PATIENT
  Sex: Male
  Weight: 66.9 kg

DRUGS (4)
  1. CARBOPLATIN [Suspect]
     Active Substance: CARBOPLATIN
     Dates: end: 20221026
  2. ETOPOSIDE [Suspect]
     Active Substance: ETOPOSIDE
     Dates: end: 20221026
  3. IFOSFAMIDE [Suspect]
     Active Substance: IFOSFAMIDE
     Dates: end: 20220821
  4. TAXOL [Suspect]
     Active Substance: PACLITAXEL
     Dates: end: 20220819

REACTIONS (5)
  - Malignant neoplasm progression [None]
  - Febrile neutropenia [None]
  - Chills [None]
  - Abdominal pain lower [None]
  - Diarrhoea [None]

NARRATIVE: CASE EVENT DATE: 20221102
